FAERS Safety Report 6918338-2 (Version None)
Quarter: 2010Q3

REPORT INFORMATION
  Report Type: 
  Country: None (occurrence: None)
  Receive Date: 20100811
  Receipt Date: 20100805
  Transmission Date: 20110219
  Serious: No
  Sender: FDA-Public Use
  Company Number: US-BIOGENIDEC-2010BI019617

PATIENT
  Age: 29 Year
  Sex: Female

DRUGS (2)
  1. TYSABRI [Suspect]
     Indication: MULTIPLE SCLEROSIS
     Route: 042
     Dates: start: 20080414, end: 20081001
  2. TYSABRI [Suspect]
     Route: 042
     Dates: start: 20090831, end: 20100503

REACTIONS (2)
  - BRONCHITIS [None]
  - EYE INFECTION [None]
